FAERS Safety Report 6738667-5 (Version None)
Quarter: 2010Q2

REPORT INFORMATION
  Report Type: 
  Country: None (occurrence: None)
  Receive Date: 20100524
  Receipt Date: 20100513
  Transmission Date: 20101027
  Serious: Yes (Hospitalization, Other)
  Sender: FDA-Public Use
  Company Number: PHHY2010DE31848

PATIENT
  Sex: Male

DRUGS (3)
  1. SANDIMMUNE [Suspect]
     Indication: RENAL TRANSPLANT
     Dosage: 175 MG/DAY (75 MG MORNING AND 100 MG EVENING)
     Route: 048
     Dates: start: 20020101
  2. ANALGESICS [Concomitant]
  3. CELL CEPT [Concomitant]
     Dosage: 500 MG IN THE MORNINGS
     Route: 048
     Dates: start: 20020101

REACTIONS (6)
  - BLOOD PRESSURE INCREASED [None]
  - HYPERHIDROSIS [None]
  - LUNG NEOPLASM MALIGNANT [None]
  - LUNG NEOPLASM SURGERY [None]
  - NEURALGIA [None]
  - PAIN [None]
